FAERS Safety Report 14657661 (Version 2)
Quarter: 2018Q1

REPORT INFORMATION
  Report Type: Spontaneous
  Country: US (occurrence: US)
  Receive Date: 20180320
  Receipt Date: 20180328
  Transmission Date: 20180509
  Serious: No
  Sender: FDA-Public Use
  Company Number: US-B.I. PHARMACEUTICALS,INC./RIDGEFIELD-2018-BI-014272

PATIENT
  Age: 84 Year
  Sex: Female

DRUGS (2)
  1. SPIRIVA RESPIMAT [Suspect]
     Active Substance: TIOTROPIUM BROMIDE
     Indication: PRODUCT USED FOR UNKNOWN INDICATION
     Dosage: 2 PUFFS ONCE PER DAY;  FORM STRENGTH: 2.5 MCG; FORMULATION: INHALATION SPRAY
     Route: 055
     Dates: start: 201801
  2. VENTOLIN [Concomitant]
     Active Substance: ALBUTEROL SULFATE
     Indication: WHEEZING
     Dosage: 2 PUFFS EVEERY 4 HOURS AS NEEDED;  FORMULATION: INHALATION SPRAY;
     Route: 055

REACTIONS (2)
  - Dyspnoea [Unknown]
  - Product quality issue [Unknown]

NARRATIVE: CASE EVENT DATE: 201802
